FAERS Safety Report 12917260 (Version 1)
Quarter: 2016Q4

REPORT INFORMATION
  Report Type: Spontaneous
  Country: US (occurrence: US)
  Receive Date: 20161107
  Receipt Date: 20161107
  Transmission Date: 20170207
  Serious: Yes (Other)
  Sender: FDA-Public Use
  Company Number: US-TEVA-690973USA

PATIENT
  Age: 70 Year
  Sex: Male
  Weight: 97.61 kg

DRUGS (1)
  1. ZOLPIDEM [Suspect]
     Active Substance: ZOLPIDEM\ZOLPIDEM TARTRATE
     Indication: INSOMNIA
     Route: 065
     Dates: start: 20160819, end: 20160819

REACTIONS (19)
  - Asthenia [Unknown]
  - Confusional state [Unknown]
  - Balance disorder [Not Recovered/Not Resolved]
  - Feeling drunk [Unknown]
  - Decreased appetite [Recovering/Resolving]
  - Dyskinesia [Unknown]
  - Fall [Unknown]
  - Balance disorder [Unknown]
  - Peroneal nerve palsy [Unknown]
  - Eyelid oedema [Not Recovered/Not Resolved]
  - Somnolence [Not Recovered/Not Resolved]
  - Gait disturbance [Not Recovered/Not Resolved]
  - Psychomotor skills impaired [Unknown]
  - Muscular weakness [Not Recovered/Not Resolved]
  - Peripheral swelling [Unknown]
  - Tremor [Not Recovered/Not Resolved]
  - Motor dysfunction [Not Recovered/Not Resolved]
  - Urinary incontinence [Unknown]
  - Coordination abnormal [Unknown]

NARRATIVE: CASE EVENT DATE: 201608
